FAERS Safety Report 6856602-6 (Version None)
Quarter: 2010Q3

REPORT INFORMATION
  Report Type: 
  Country: None (occurrence: None)
  Receive Date: 20100716
  Receipt Date: 20100716
  Transmission Date: 20110219
  Serious: Yes (Hospitalization)
  Sender: FDA-Public Use
  Company Number: None

PATIENT
  Age: 48 Year
  Sex: Male
  Weight: 95.5 kg

DRUGS (2)
  1. VIDAZA [Suspect]
     Indication: SARCOMA
     Dosage: 250MG DAYS 1-4 + 15-18 SQ
     Route: 058
     Dates: start: 20100517, end: 20100617
  2. TARCEVA [Suspect]
     Indication: SARCOMA
     Dosage: 150MG DAYS 1-28 PO
     Route: 048
     Dates: start: 20100517, end: 20100701

REACTIONS (4)
  - DIVERTICULITIS [None]
  - ESCHERICHIA BACTERAEMIA [None]
  - NEUTROPHIL COUNT DECREASED [None]
  - WHITE BLOOD CELL COUNT DECREASED [None]
